FAERS Safety Report 21340870 (Version 1)
Quarter: 2022Q3

REPORT INFORMATION
  Report Type: Spontaneous
  Country: CA (occurrence: CA)
  Receive Date: 20220916
  Receipt Date: 20220916
  Transmission Date: 20221027
  Serious: Yes (Other)
  Sender: FDA-Public Use
  Company Number: CA-AMGEN-CANSP2022158535

PATIENT
  Age: 62 Year
  Sex: Female
  Weight: 86 kg

DRUGS (4)
  1. EVENITY [Suspect]
     Active Substance: ROMOSOZUMAB-AQQG
     Indication: Osteoporosis
     Dosage: 210 MILLIGRAM, 2 EVERY 1 MONTHS
     Route: 058
  2. CHOLECALCIFEROL [Concomitant]
     Active Substance: CHOLECALCIFEROL
     Dosage: UNK
     Route: 065
  3. ERGOCALCIFEROL [Concomitant]
     Active Substance: ERGOCALCIFEROL
     Dosage: UNK
     Route: 065
  4. RAMIPRIL [Concomitant]
     Active Substance: RAMIPRIL
     Dosage: UNK
     Route: 065

REACTIONS (5)
  - Transient ischaemic attack [Recovered/Resolved]
  - Hypertension [Recovered/Resolved]
  - Confusional state [Recovered/Resolved]
  - Therapy change [Recovered/Resolved]
  - Hypoaesthesia [Recovered/Resolved]
